FAERS Safety Report 23323367 (Version 1)
Quarter: 2023Q4

REPORT INFORMATION
  Report Type: Other
  Country: US (occurrence: None)
  Receive Date: 20231220
  Receipt Date: 20231220
  Transmission Date: 20240109
  Serious: No
  Sender: FDA-Public Use
  Company Number: US-ROCHE-3350241

PATIENT
  Age: 68 Year
  Sex: Male

DRUGS (8)
  1. RITUXIMAB [Suspect]
     Active Substance: RITUXIMAB
     Indication: Conjunctival scar
     Dosage: 8 DOSES
     Route: 042
  2. RITUXIMAB [Suspect]
     Active Substance: RITUXIMAB
     Dosage: 10 INFUSIONS
     Route: 042
  3. MYCOPHENOLATE MOFETIL [Suspect]
     Active Substance: MYCOPHENOLATE MOFETIL
     Indication: Conjunctival scar
     Route: 065
  4. METHOTREXATE [Concomitant]
     Active Substance: METHOTREXATE
  5. LOTEPREDNOL [Concomitant]
     Active Substance: LOTEPREDNOL
  6. DORZOLAMIDE [Concomitant]
     Active Substance: DORZOLAMIDE
  7. TIMOLOL [Concomitant]
     Active Substance: TIMOLOL
  8. TRIAMCINOLONE ACETONIDE [Concomitant]
     Active Substance: TRIAMCINOLONE ACETONIDE
     Dosage: 40 MG/ML

REACTIONS (1)
  - Disease progression [Unknown]
